FAERS Safety Report 19646861 (Version 1)
Quarter: 2021Q3

REPORT INFORMATION
  Report Type: Spontaneous
  Country: FR (occurrence: FR)
  Receive Date: 20210802
  Receipt Date: 20210802
  Transmission Date: 20211014
  Serious: Yes (Hospitalization)
  Sender: FDA-Public Use
  Company Number: NVSC2021FR168599

PATIENT
  Age: 73 Year
  Sex: Male

DRUGS (2)
  1. GENTAMICIN. [Suspect]
     Active Substance: GENTAMICIN
     Indication: MENINGITIS LISTERIA
     Dosage: 320 MG (320 MG/JRS EN IV)
     Route: 042
     Dates: start: 20210525, end: 20210530
  2. AMOXICILLINE [Suspect]
     Active Substance: AMOXICILLIN
     Indication: MENINGITIS LISTERIA
     Dosage: 18 MG (18MG/JRS EN IV)
     Route: 042
     Dates: start: 20210525, end: 20210601

REACTIONS (3)
  - Crystalluria [Recovering/Resolving]
  - Overdose [Recovering/Resolving]
  - Acute kidney injury [Recovering/Resolving]

NARRATIVE: CASE EVENT DATE: 202105
